FAERS Safety Report 18952965 (Version 1)
Quarter: 2021Q1

REPORT INFORMATION
  Report Type: Spontaneous
  Country: CA (occurrence: CA)
  Receive Date: 20210301
  Receipt Date: 20210301
  Transmission Date: 20210420
  Serious: Yes (Hospitalization)
  Sender: FDA-Public Use
  Company Number: CA-CELGENEUS-CAN-20210206363

PATIENT
  Sex: Female

DRUGS (1)
  1. REVLIMID [Suspect]
     Active Substance: LENALIDOMIDE
     Indication: PRODUCT USED FOR UNKNOWN INDICATION
     Dosage: 10 MILLIGRAM
     Route: 048

REACTIONS (3)
  - Asthenia [Unknown]
  - Haemoglobin decreased [Unknown]
  - Vaginal haemorrhage [Unknown]

NARRATIVE: CASE EVENT DATE: 20210219
